FAERS Safety Report 18367680 (Version 1)
Quarter: 2020Q4

REPORT INFORMATION
  Report Type: Not Available
  Country: US (occurrence: US)
  Receive Date: 20201009
  Receipt Date: 20201009
  Transmission Date: 20210114
  Serious: No
  Sender: FDA-Public Use
  Company Number: US-C B FLEET CO INC-202001-US-000090

PATIENT
  Sex: Female

DRUGS (2)
  1. MONISTAT CARE INSTANT ITCH RELIEF [Suspect]
     Active Substance: BENZOCAINE
  2. MONISTAT 3 COMBINATION PACK [Suspect]
     Active Substance: MICONAZOLE NITRATE
     Indication: PRODUCT USED FOR UNKNOWN INDICATION
     Dosage: DOSAGE UNKNOWN
     Route: 067

REACTIONS (3)
  - Vulvovaginal pruritus [Not Recovered/Not Resolved]
  - Vaginal haemorrhage [Not Recovered/Not Resolved]
  - Vulvovaginal burning sensation [Not Recovered/Not Resolved]
